FAERS Safety Report 5043032-5 (Version None)
Quarter: 2006Q2

REPORT INFORMATION
  Report Type: 
  Country: None (occurrence: None)
  Receive Date: 20060627
  Receipt Date: 20060612
  Transmission Date: 20061013
  Serious: Yes (Death, Hospitalization, Other)
  Sender: FDA-Public Use
  Company Number: 2005046979

PATIENT
  Age: 56 Year
  Sex: Female
  Weight: 84 kg

DRUGS (8)
  1. DOXORUBICIN HCL [Suspect]
     Indication: BREAST CANCER
     Dosage: 95 MG (1 IN 3 WK), INTRAVNEOUS
     Route: 042
     Dates: start: 20050221, end: 20050221
  2. ALITMA (PEMETREXED) [Suspect]
     Indication: BREAST CANCER
     Dosage: 950 MG (1 IN 3 WK), INTRAVENOUS
     Route: 042
     Dates: start: 20050221, end: 20050221
  3. AMITRIPTYLINE HCL [Concomitant]
  4. FOLIC ACID [Concomitant]
  5. VITAMIN B2 (VATIMIN B12) [Concomitant]
  6. DEXAMETHASONE [Concomitant]
  7. RISPERIDONE [Concomitant]
  8. PRIDINOL (PRIDINOL) [Concomitant]

REACTIONS (16)
  - ABDOMINAL PAIN [None]
  - AGITATION [None]
  - BLOOD SODIUM DECREASED [None]
  - BREATH SOUNDS ABNORMAL [None]
  - CONFUSIONAL STATE [None]
  - DIARRHOEA [None]
  - FAECES PALE [None]
  - GASTROINTESTINAL HYPERMOTILITY [None]
  - HYPOTENSION [None]
  - LEUKOPENIA [None]
  - NEUTROPENIA [None]
  - PERFORMANCE STATUS DECREASED [None]
  - PLATELET COUNT DECREASED [None]
  - PYREXIA [None]
  - RED BLOOD CELL COUNT DECREASED [None]
  - VOMITING [None]
